FAERS Safety Report 8592600-2 (Version None)
Quarter: 2012Q3

REPORT INFORMATION
  Report Type: 
  Country: None (occurrence: None)
  Receive Date: 20120814
  Receipt Date: 20120808
  Transmission Date: 20120928
  Serious: Yes (Death)
  Sender: FDA-Public Use
  Company Number: NG-PFIZER INC-2012191468

PATIENT
  Age: 31 Year
  Sex: Female

DRUGS (4)
  1. ITRACONAZOLE [Concomitant]
     Route: 048
  2. MEROPENEM [Concomitant]
     Dosage: UNK
     Route: 042
     Dates: start: 20120803, end: 20120803
  3. VFEND [Suspect]
     Indication: ASPERGILLOSIS
     Dosage: UNK
     Route: 042
     Dates: start: 20120802, end: 20120803
  4. FLUCONAZOLE [Concomitant]
     Dosage: UNK
     Route: 048
     Dates: end: 20120701

REACTIONS (1)
  - FUNGAL INFECTION [None]
